FAERS Safety Report 9674433 (Version 1)
Quarter: 2013Q4

REPORT INFORMATION
  Report Type: Report from Study
  Country: US (occurrence: US)
  Receive Date: 20131107
  Receipt Date: 20131107
  Transmission Date: 20140711
  Serious: Yes (Hospitalization)
  Sender: FDA-Public Use
  Company Number: US-ROCHE-1297487

PATIENT
  Sex: Male

DRUGS (1)
  1. RITUXAN [Suspect]
     Indication: NON-HODGKIN^S LYMPHOMA
     Route: 042
     Dates: start: 20131018

REACTIONS (5)
  - Hypotension [Recovering/Resolving]
  - Leukocytosis [Recovering/Resolving]
  - Blood creatinine increased [Recovering/Resolving]
  - Rash maculo-papular [Unknown]
  - Pyrexia [Recovering/Resolving]
